FAERS Safety Report 7461796-8 (Version None)
Quarter: 2011Q2

REPORT INFORMATION
  Report Type: 
  Country: None (occurrence: None)
  Receive Date: 20110506
  Receipt Date: 20110422
  Transmission Date: 20111010
  Serious: Yes (Hospitalization, Other)
  Sender: FDA-Public Use
  Company Number: US-BAYER-201041962NA

PATIENT
  Age: 24 Year
  Sex: Female
  Weight: 65.76 kg

DRUGS (27)
  1. HYCODAN [Concomitant]
     Indication: COUGH
     Dosage: 1 TEASPOON EVERY 4-6 HOURS
     Route: 048
     Dates: start: 20080124
  2. MIRTAZAPINE [Concomitant]
     Indication: DEPRESSION
  3. NASONEX [Concomitant]
     Dosage: 2 SPRAYS
     Route: 045
     Dates: start: 20080124
  4. REMERON [Concomitant]
     Indication: DEPRESSION
     Dosage: 30 MG, QD
  5. TUMS [Concomitant]
  6. NSAID'S [Concomitant]
     Dosage: UNK UNK, PRN
  7. YAZ [Suspect]
     Indication: MENSTRUAL CYCLE MANAGEMENT
     Dosage: UNK UNK, QD
     Route: 048
     Dates: start: 20080101, end: 20090101
  8. DEXAMETHASONE [Concomitant]
     Dosage: UNK
     Dates: start: 20080124
  9. AZITHROMYCIN [Concomitant]
     Dosage: 250 MG, UNK
     Route: 048
     Dates: start: 20080515
  10. PEPCID [Concomitant]
  11. YAZ [Suspect]
     Indication: ORAL CONTRACEPTION
  12. LORAZEPAM [Concomitant]
     Indication: ANXIETY
     Dosage: 0.5 MG, QD
     Route: 048
     Dates: start: 20080331
  13. CLARITIN [Concomitant]
  14. LORTAB [Concomitant]
  15. MACROBID [Concomitant]
     Indication: URINARY TRACT INFECTION
  16. AMOXICILLIN [Concomitant]
     Dosage: 500 MG, BID
     Route: 048
     Dates: start: 20080324
  17. ATIVAN [Concomitant]
  18. MIRTAZAPINE [Concomitant]
     Indication: ANXIETY
     Dosage: 15 MG, HS
     Route: 048
     Dates: start: 20070401
  19. ALDARA [Concomitant]
     Dosage: UNK
     Dates: start: 20080515
  20. ZITHROMAX [Concomitant]
  21. ADVIL LIQUI-GELS [Concomitant]
  22. BENTYL [Concomitant]
  23. EFFEXOR XR [Concomitant]
     Indication: DEPRESSION
     Dosage: 150 MG, QD
     Route: 048
     Dates: start: 20070401, end: 20091201
  24. MECLIZINE [Concomitant]
     Indication: DIZZINESS
     Dosage: 25 MG, PRN
     Route: 048
     Dates: start: 20080324
  25. CLONAZEPAM [Concomitant]
     Dosage: 0.5 MG, UNK
     Route: 048
  26. DIFLUCAN [Concomitant]
  27. ZYRTEC [Concomitant]

REACTIONS (4)
  - DEEP VEIN THROMBOSIS [None]
  - PORTAL VEIN THROMBOSIS [None]
  - ABDOMINAL PAIN UPPER [None]
  - FEAR [None]
